FAERS Safety Report 15310245 (Version 1)
Quarter: 2018Q3

REPORT INFORMATION
  Report Type: Spontaneous
  Country: US (occurrence: US)
  Receive Date: 20180813
  Receipt Date: 20180813
  Transmission Date: 20181010
  Serious: No
  Sender: FDA-Public Use
  Company Number: None

PATIENT
  Age: 54 Year
  Sex: Female

DRUGS (1)
  1. VALSARTAN 160 MG [Suspect]
     Active Substance: VALSARTAN
     Indication: HYPERTENSION
     Dosage: ?          QUANTITY:1 TABLET(S);?
     Route: 048
     Dates: start: 20171211, end: 20180724

REACTIONS (5)
  - Headache [None]
  - Feeling abnormal [None]
  - Eustachian tube disorder [None]
  - Insurance issue [None]
  - Tinnitus [None]

NARRATIVE: CASE EVENT DATE: 20171218
